FAERS Safety Report 13306826 (Version 1)
Quarter: 2017Q1

REPORT INFORMATION
  Report Type: Spontaneous
  Country: US (occurrence: US)
  Receive Date: 20170308
  Receipt Date: 20170308
  Transmission Date: 20170428
  Serious: No
  Sender: FDA-Public Use
  Company Number: US-AKORN PHARMACEUTICALS-2017AKN00067

PATIENT
  Sex: Female

DRUGS (4)
  1. MYORISAN [Suspect]
     Active Substance: ISOTRETINOIN
     Dosage: 20 MG, 1X/DAY
     Route: 048
     Dates: end: 20170113
  2. MIRENA [Concomitant]
     Active Substance: LEVONORGESTREL
  3. MYORISAN [Suspect]
     Active Substance: ISOTRETINOIN
     Indication: ACNE
     Dosage: 20 MG, 2X/DAY
     Route: 048
     Dates: start: 20161216, end: 201612
  4. HAIR SKIN AND NAILS SUPPLEMENT [Concomitant]

REACTIONS (2)
  - Headache [Recovered/Resolved]
  - Vertigo [Recovered/Resolved]
